FAERS Safety Report 9741296 (Version 2)
Quarter: 2014Q1

REPORT INFORMATION
  Report Type: Spontaneous
  Country: GB (occurrence: GB)
  Receive Date: 20131209
  Receipt Date: 20140120
  Transmission Date: 20141002
  Serious: Yes (Other)
  Sender: FDA-Public Use
  Company Number: PHHY2013GB140748

PATIENT
  Age: 32 Year
  Sex: Female

DRUGS (13)
  1. HALOPERIDOL [Suspect]
     Indication: SCHIZOPHRENIA, PARANOID TYPE
     Dosage: 5 MG, BID
     Route: 048
     Dates: start: 20111229, end: 20120104
  2. HALOPERIDOL [Suspect]
     Dosage: 5 MG, TID
     Route: 048
     Dates: start: 20120105, end: 20120109
  3. RISPERDAL [Suspect]
     Indication: SCHIZOPHRENIA, PARANOID TYPE
     Dosage: 3 MG, BID
     Route: 048
     Dates: start: 20120308, end: 20120609
  4. RISPERDAL [Suspect]
     Dosage: 7 MG, (3 MG MORNING AND 4 MG AT NIGHT)
     Route: 048
     Dates: start: 20120221, end: 20120307
  5. RISPERDAL [Suspect]
     Dosage: 3 MG, UNK
     Route: 048
     Dates: start: 20120221, end: 20120307
  6. RISPERDAL [Suspect]
     Dosage: 6 MG, UNK
     Route: 048
     Dates: start: 20120609, end: 20120821
  7. CHLORPROMAZINE [Suspect]
     Indication: SCHIZOPHRENIA, PARANOID TYPE
     Dosage: 200 MG, TID DOSAGE FORM: TABLETS
     Route: 065
     Dates: start: 20120109, end: 20120114
  8. CHLORPROMAZINE [Suspect]
     Dosage: 25 MG, TID
     Route: 065
     Dates: start: 20111215, end: 20111219
  9. ZOPICLONE [Suspect]
     Indication: INSOMNIA
     Dosage: 15 MG, UNK
     Route: 065
     Dates: start: 20120210, end: 20120718
  10. SYNTOMETRINE [Concomitant]
     Dosage: 1 DF, UNK
     Route: 030
     Dates: start: 20120718, end: 20120718
  11. ENTONOX [Concomitant]
     Indication: ANALGESIC THERAPY
     Dates: end: 20120718
  12. PROMETHAZINE [Concomitant]
     Dosage: 25 MG, BID
     Route: 065
     Dates: start: 20111216
  13. SENNA [Concomitant]
     Dosage: 15 MG, UNK
     Route: 065
     Dates: start: 20120116

REACTIONS (3)
  - Schizoaffective disorder [Unknown]
  - Blood iron decreased [Unknown]
  - Maternal exposure during pregnancy [Recovered/Resolved]
